FAERS Safety Report 18036052 (Version 1)
Quarter: 2020Q3

REPORT INFORMATION
  Report Type: Spontaneous
  Country: US (occurrence: US)
  Receive Date: 20200715
  Receipt Date: 20200715
  Transmission Date: 20201103
  Serious: No
  Sender: FDA-Public Use
  Company Number: None

PATIENT

DRUGS (1)
  1. ROCURONIUM [Suspect]
     Active Substance: ROCURONIUM BROMIDE

REACTIONS (6)
  - Dizziness [None]
  - Accidental exposure to product [None]
  - Product container issue [None]
  - Occupational exposure to product [None]
  - Hypoaesthesia [None]
  - Paraesthesia [None]
